FAERS Safety Report 21052196 (Version 1)
Quarter: 2022Q3

REPORT INFORMATION
  Report Type: Spontaneous
  Country: ES (occurrence: ES)
  Receive Date: 20220707
  Receipt Date: 20220707
  Transmission Date: 20221027
  Serious: Yes (Other)
  Sender: FDA-Public Use
  Company Number: ES-MYLANLABS-2022M1050875

PATIENT
  Sex: Male

DRUGS (7)
  1. IMIQUIMOD [Suspect]
     Active Substance: IMIQUIMOD
     Indication: Porokeratosis
     Dosage: UNK
     Route: 061
  2. SIMVASTATIN [Suspect]
     Active Substance: SIMVASTATIN
     Indication: Porokeratosis
     Dosage: UNK, BID, TWICE DAILY; CHOLESTEROL 2% /SIMVASTATIN 2% OINTMENT USING....
     Route: 061
  3. SIMVASTATIN [Suspect]
     Active Substance: SIMVASTATIN
     Dosage: UNK, QD, ONCE DAILY; CHOLESTEROL 2% /SIMVASTATIN 2% OINTMENT USING....
     Route: 061
  4. DICLOFENAC [Suspect]
     Active Substance: DICLOFENAC
     Indication: Porokeratosis
     Dosage: UNK
     Route: 061
  5. TACALCITOL [Suspect]
     Active Substance: TACALCITOL
     Indication: Porokeratosis
     Dosage: UNK
     Route: 061
  6. CALCIPOTRIENE [Suspect]
     Active Substance: CALCIPOTRIENE
     Indication: Porokeratosis
     Dosage: UNK
     Route: 061
  7. CALCITRIOL [Suspect]
     Active Substance: CALCITRIOL
     Indication: Porokeratosis
     Dosage: UNK
     Route: 061

REACTIONS (2)
  - Drug ineffective [Unknown]
  - Off label use [Unknown]
